FAERS Safety Report 16304040 (Version 1)
Quarter: 2019Q2

REPORT INFORMATION
  Report Type: Spontaneous
  Country: US (occurrence: US)
  Receive Date: 20190513
  Receipt Date: 20190513
  Transmission Date: 20190711
  Serious: No
  Sender: FDA-Public Use
  Company Number: US-009507513-1905USA003637

PATIENT
  Sex: Male

DRUGS (2)
  1. SINEMET [Suspect]
     Active Substance: CARBIDOPA\LEVODOPA
     Indication: DYSTONIA
     Dosage: UNK
     Route: 048
  2. SINEMET CR [Suspect]
     Active Substance: CARBIDOPA\LEVODOPA
     Indication: DYSTONIA
     Dosage: 1 TABLET EVERY MORINING AND 1/2 EVERY EVENING AS NEEDED (WITH THREE SINAMET 50/200 CR TABLETS DAILY)
     Route: 048

REACTIONS (5)
  - Feeling abnormal [Not Recovered/Not Resolved]
  - Product availability issue [Unknown]
  - Product use in unapproved indication [Unknown]
  - Product dose omission [Unknown]
  - Incorrect dose administered [Unknown]
